FAERS Safety Report 24352651 (Version 1)
Quarter: 2024Q3

REPORT INFORMATION
  Report Type: Report from Study
  Country: IT (occurrence: IT)
  Receive Date: 20240923
  Receipt Date: 20240923
  Transmission Date: 20241017
  Serious: No
  Sender: ROCHE
  Company Number: None

PATIENT
  Age: 59 Year
  Sex: Female
  Weight: 90.0 kg

DRUGS (3)
  1. TRASTUZUMAB [Suspect]
     Active Substance: TRASTUZUMAB
     Indication: Breast cancer metastatic
     Dosage: REACTION MANIFESTED AFTER THE SECOND CYCLE - FROM 04/04/2023, ON DAY 1 - 8 - 15 EVERY 21 DAYS - STAR
     Route: 065
     Dates: start: 20230404, end: 20230404
  2. PERJETA [Suspect]
     Active Substance: PERTUZUMAB
     Indication: Breast cancer metastatic
     Dosage: REACTION MANIFESTED AFTER THE SECOND CYCLE - FROM 04/04/2023, ON DAY 1 - 8 AND 15 EVERY 21 DAYS - ST
     Route: 065
     Dates: start: 20230404, end: 20230404
  3. PACLITAXEL [Suspect]
     Active Substance: PACLITAXEL
     Indication: Breast cancer metastatic
     Dosage: REACTION MANIFESTED AFTER THE SECOND CYCLE - FROM 04/04/2023, ON DAY 1 - 8 - 15 EVERY 21 DAYS - STAR
     Route: 065
     Dates: start: 20230404, end: 20230404

REACTIONS (1)
  - Dysphonia [Recovering/Resolving]

NARRATIVE: CASE EVENT DATE: 20230413
